FAERS Safety Report 23027596 (Version 2)
Quarter: 2023Q4

REPORT INFORMATION
  Report Type: Spontaneous
  Country: GB (occurrence: GB)
  Receive Date: 20231004
  Receipt Date: 20231012
  Transmission Date: 20240110
  Serious: Yes (Other)
  Sender: FDA-Public Use
  Company Number: GB-002147023-NVSC2023GB211544

PATIENT
  Sex: Male

DRUGS (5)
  1. LUTATHERA [Suspect]
     Active Substance: LUTETIUM OXODOTREOTIDE LU-177
     Indication: Paraganglion neoplasm
     Dosage: UNK (COURSE ONE)
     Route: 065
     Dates: start: 20150513
  2. LUTATHERA [Suspect]
     Active Substance: LUTETIUM OXODOTREOTIDE LU-177
     Dosage: UNK (COURSE TWO)
     Route: 065
     Dates: start: 20150715
  3. LUTATHERA [Suspect]
     Active Substance: LUTETIUM OXODOTREOTIDE LU-177
     Dosage: UNK (COURSE THREE)
     Route: 065
     Dates: start: 20150909
  4. LUTATHERA [Suspect]
     Active Substance: LUTETIUM OXODOTREOTIDE LU-177
     Dosage: UNK (COURSE FOUR)
     Route: 065
     Dates: start: 20151111
  5. ZOLEDRONIC ACID [Concomitant]
     Active Substance: ZOLEDRONIC ACID
     Indication: Product used for unknown indication
     Dosage: UNK (LOCALLY)
     Route: 061
     Dates: start: 2018

REACTIONS (5)
  - Malignant neoplasm progression [Unknown]
  - Paraganglion neoplasm [Unknown]
  - Bone cancer metastatic [Unknown]
  - Metastases to spine [Unknown]
  - Product use in unapproved indication [Unknown]

NARRATIVE: CASE EVENT DATE: 20150513
